FAERS Safety Report 9387840 (Version 2)
Quarter: 2015Q3

REPORT INFORMATION
  Report Type: Spontaneous
  Country: US (occurrence: US)
  Receive Date: 20130708
  Receipt Date: 20150730
  Transmission Date: 20151125
  Serious: Yes (Death, Hospitalization, Other)
  Sender: FDA-Public Use
  Company Number: US-BAXTER-2013BAX025036

PATIENT
  Age: 61 Year
  Sex: Female

DRUGS (1)
  1. DIANEAL LOW CALCIUM PERITONEAL DIALYSIS SOLUTION WITH DEXTROSE [Suspect]
     Active Substance: CALCIUM CHLORIDE\DEXTROSE\MAGNESIUM CHLORIDE\SODIUM CHLORIDE\SODIUM LACTATE
     Indication: PERITONEAL DIALYSIS
     Route: 033
     Dates: start: 20120510, end: 20130622

REACTIONS (7)
  - Thrombosis [Fatal]
  - Ankle fracture [Not Recovered/Not Resolved]
  - Dizziness [Unknown]
  - Cardiac arrest [Fatal]
  - Procedural complication [Fatal]
  - Haemoglobin decreased [Unknown]
  - Fall [Unknown]

NARRATIVE: CASE EVENT DATE: 201306
